FAERS Safety Report 11431267 (Version 3)
Quarter: 2017Q2

REPORT INFORMATION
  Report Type: Spontaneous
  Country: DK (occurrence: DK)
  Receive Date: 20150828
  Receipt Date: 20170417
  Transmission Date: 20170829
  Serious: Yes (Other)
  Sender: FDA-Public Use
  Company Number: DK-TEVA-588209ISR

PATIENT
  Age: 26 Year
  Sex: Male

DRUGS (7)
  1. HOLOXAN [Concomitant]
     Active Substance: IFOSFAMIDE
     Indication: CHEMOTHERAPY
     Route: 065
     Dates: start: 20100809, end: 201101
  2. IFOSFAMID ^A-PHARMA^ [Concomitant]
     Indication: CHEMOTHERAPY
     Route: 065
     Dates: start: 201102, end: 20110622
  3. ACTINOMYCIN D [Concomitant]
     Active Substance: DACTINOMYCIN
     Indication: CHEMOTHERAPY
     Dates: start: 20110112, end: 20110511
  4. DOXORUBICIN ^TEVA^ [Suspect]
     Active Substance: DOXORUBICIN HYDROCHLORIDE
     Indication: CHEMOTHERAPY
     Route: 065
     Dates: start: 20100809, end: 20101123
  5. ONCOVIN [Concomitant]
     Active Substance: VINCRISTINE SULFATE
     Indication: CHEMOTHERAPY
     Dates: start: 20100809, end: 20110511
  6. ETOPOSIDE. [Concomitant]
     Active Substance: ETOPOSIDE
     Indication: CHEMOTHERAPY
     Dates: start: 20100809, end: 20101123
  7. UROMITEXAN [Concomitant]
     Active Substance: MESNA
     Indication: CHEMOTHERAPY
     Dates: start: 20100809, end: 20110511

REACTIONS (5)
  - Cardiac failure [Recovered/Resolved]
  - Acute kidney injury [None]
  - Haemodialysis [None]
  - Pain in extremity [None]
  - Gait disturbance [None]

NARRATIVE: CASE EVENT DATE: 201302
